FAERS Safety Report 10641219 (Version 1)
Quarter: 2014Q4

REPORT INFORMATION
  Report Type: Spontaneous
  Country: FR (occurrence: None)
  Receive Date: 20141208
  Receipt Date: 20141208
  Transmission Date: 20150529
  Serious: Yes (Other)
  Sender: FDA-Public Use
  Company Number: 7337358

PATIENT
  Age: 25 Year
  Sex: Female
  Weight: 103 kg

DRUGS (3)
  1. RHOPHYLAC [Suspect]
     Active Substance: HUMAN RHO(D) IMMUNE GLOBULIN
     Indication: PRODUCT USED FOR UNKNOWN INDICATION
     Dosage: 2 ML
     Route: 048
     Dates: start: 20140113, end: 20140113
  2. PROGESTAN [Suspect]
     Active Substance: PROGESTERONE
     Indication: DYSFUNCTIONAL UTERINE BLEEDING
     Route: 048
     Dates: start: 20140120, end: 20140331
  3. LEVOTHYROX (LEVOTHYROXINE SODIUM) (LEVOTHYROXINE SODIUM) [Suspect]
     Active Substance: LEVOTHYROXINE SODIUM
     Indication: HYPOTHYROIDISM
     Route: 048

REACTIONS (8)
  - Streptococcus test positive [None]
  - Metrorrhagia [None]
  - Umbilical cord short [None]
  - Maternal exposure during pregnancy [None]
  - Uterine malposition [None]
  - Meconium in amniotic fluid [None]
  - Pregnancy [None]
  - Gestational diabetes [None]

NARRATIVE: CASE EVENT DATE: 2014
